FAERS Safety Report 10244482 (Version 2)
Quarter: 2014Q2

REPORT INFORMATION
  Report Type: Report from Study
  Country: NL (occurrence: NL)
  Receive Date: 20140618
  Receipt Date: 20140618
  Transmission Date: 20141212
  Serious: Yes (Other)
  Sender: FDA-Public Use
  Company Number: PHHY2012NL102166

PATIENT
  Age: 70 Year
  Sex: Female

DRUGS (2)
  1. ZOMETA [Suspect]
     Indication: BREAST CANCER METASTATIC
     Dosage: 4 MG/ 100ML ONCE EVERY 42 DAYS
     Route: 041
  2. ZOMETA [Suspect]
     Dosage: 4 MG/ 100ML ONCE EVERY 42 DAYS
     Route: 041
     Dates: start: 20121126

REACTIONS (4)
  - Gastrointestinal carcinoma [Unknown]
  - Second primary malignancy [Unknown]
  - Abdominal pain [Not Recovered/Not Resolved]
  - Renal impairment [Unknown]
